FAERS Safety Report 15919528 (Version 1)
Quarter: 2019Q1

REPORT INFORMATION
  Report Type: Spontaneous
  Country: US (occurrence: US)
  Receive Date: 20190205
  Receipt Date: 20190205
  Transmission Date: 20190417
  Serious: No
  Sender: FDA-Public Use
  Company Number: US-ROCHE-2101534

PATIENT
  Sex: Female

DRUGS (3)
  1. SYMBICORT [Concomitant]
     Active Substance: BUDESONIDE\FORMOTEROL FUMARATE DIHYDRATE
     Dosage: MCG
     Route: 065
  2. XOLAIR [Suspect]
     Active Substance: OMALIZUMAB
     Indication: ASTHMA
     Dosage: INJECTION; 150MG VIAL
     Route: 058
     Dates: start: 201803
  3. ALBUTEIN [Concomitant]
     Active Substance: ALBUMIN HUMAN
     Route: 065

REACTIONS (1)
  - Myalgia [Recovered/Resolved]
